FAERS Safety Report 6463780-X (Version None)
Quarter: 2009Q4

REPORT INFORMATION
  Report Type: 
  Country: None (occurrence: None)
  Receive Date: 20091201
  Receipt Date: 20091120
  Transmission Date: 20100525
  Serious: No
  Sender: FDA-Public Use
  Company Number: US-JNJFOC-20091106856

PATIENT
  Sex: Male
  Weight: 136.08 kg

DRUGS (2)
  1. DURAGESIC-100 [Suspect]
     Indication: PAIN
     Route: 062
     Dates: start: 20080101, end: 20091001
  2. DURAGESIC-100 [Suspect]
     Route: 062
     Dates: start: 20091001

REACTIONS (1)
  - DRUG ADMINISTERED AT INAPPROPRIATE SITE [None]
